FAERS Safety Report 4686348-4 (Version None)
Quarter: 2005Q2

REPORT INFORMATION
  Report Type: 
  Country: None (occurrence: None)
  Receive Date: 20050609
  Receipt Date: 20050530
  Transmission Date: 20051028
  Serious: Yes (Death, Life-Threatening, Hospitalization)
  Sender: FDA-Public Use
  Company Number: SE-JNJFOC-20050402493

PATIENT
  Age: 38 Year
  Sex: Male
  Weight: 83 kg

DRUGS (7)
  1. REMICADE [Suspect]
     Route: 042
  2. BETAPRED [Suspect]
  3. CORTISONE [Concomitant]
  4. COLIFOAM [Concomitant]
     Route: 054
  5. ASACOL [Concomitant]
  6. METRONIDAZOLE [Concomitant]
  7. ASACOL [Concomitant]
     Route: 054

REACTIONS (6)
  - NECROSIS [None]
  - PERITONITIS [None]
  - PULMONARY OEDEMA [None]
  - PULMONARY SEPSIS [None]
  - SEPSIS [None]
  - SPLENIC INFECTION [None]
